FAERS Safety Report 8047368-5 (Version None)
Quarter: 2012Q1

REPORT INFORMATION
  Report Type: 
  Country: None (occurrence: None)
  Receive Date: 20120116
  Receipt Date: 20120109
  Transmission Date: 20120608
  Serious: Yes (Death, Other)
  Sender: FDA-Public Use
  Company Number: US-BAYER-2011-053123

PATIENT
  Age: 28 Year
  Sex: Female
  Weight: 102.4 kg

DRUGS (6)
  1. YAZ [Suspect]
     Indication: CONTRACEPTION
     Dosage: UNK
     Dates: start: 20040801, end: 20060401
  2. SEREVENT [Concomitant]
     Indication: ASTHMA
  3. ALBUTEROL [Concomitant]
  4. ADVAIR DISKUS 100/50 [Concomitant]
     Indication: ASTHMA
  5. MEDROL [Concomitant]
     Route: 048
  6. YAZ [Suspect]
     Dosage: UNK
     Dates: start: 20081101, end: 20090621

REACTIONS (2)
  - PULMONARY EMBOLISM [None]
  - DEEP VEIN THROMBOSIS [None]
